FAERS Safety Report 4915017-8 (Version None)
Quarter: 2006Q1

REPORT INFORMATION
  Report Type: 
  Country: None (occurrence: None)
  Receive Date: 20060217
  Receipt Date: 20051203
  Transmission Date: 20060701
  Serious: Yes (Other)
  Sender: FDA-Public Use
  Company Number: PHNU2005DE03994

PATIENT
  Age: 82 Year
  Sex: Female
  Weight: 75 kg

DRUGS (6)
  1. OSYROL-LASIX [Suspect]
  2. NORVASC [Suspect]
  3. ASPIRIN [Suspect]
     Dosage: 1 DF, QD
  4. DIOVAN HCT [Suspect]
     Indication: MALIGNANT HYPERTENSION
     Dosage: 80 MG/D
     Dates: start: 20040101, end: 20051113
  5. LASIX [Suspect]
     Dosage: 1 DF, QD
  6. KALINOR-BRAUSETABLETTEN [Suspect]
     Dosage: 0.5 DF, QD

REACTIONS (4)
  - ACTIVITIES OF DAILY LIVING IMPAIRED [None]
  - BEDRIDDEN [None]
  - MENIERE'S DISEASE [None]
  - NAUSEA [None]
